FAERS Safety Report 4694027-2 (Version None)
Quarter: 2005Q2

REPORT INFORMATION
  Report Type: 
  Country: None (occurrence: None)
  Receive Date: 20050616
  Receipt Date: 20050531
  Transmission Date: 20051028
  Serious: Yes (Hospitalization)
  Sender: FDA-Public Use
  Company Number: 214786

PATIENT
  Age: 55 Year
  Sex: Male

DRUGS (11)
  1. AVASTIN [Suspect]
     Indication: HEPATIC NEOPLASM MALIGNANT
     Dosage: 5 MG/KG, Q3W, INTRAVENOUS
     Route: 042
     Dates: start: 20050331, end: 20050512
  2. OXALIPLATIN (OXALIPLATIN) [Concomitant]
  3. CAPECITABINE  (CAPECITAIBINE) [Concomitant]
  4. OXYCONTIN [Concomitant]
  5. STOOL SOFTENER OTC (BRAND  UNKNONW)(STOOL SOFTENER NOS) [Concomitant]
  6. LASIX [Concomitant]
  7. ZOFRAN [Concomitant]
  8. ALDACTONE (ALDACTONE) [Concomitant]
  9. PERCOCET [Concomitant]
  10. LACTULOSE [Concomitant]
  11. MULTIVITAMINS (UNK INGRIDIENTS)(MULTIVITAMINS NOS) [Concomitant]

REACTIONS (5)
  - HYPOTENSION [None]
  - OESOPHAGEAL DISORDER [None]
  - RECTAL HAEMORRHAGE [None]
  - RESPIRATORY TRACT INFECTION FUNGAL [None]
  - VARICES OESOPHAGEAL [None]
